FAERS Safety Report 17135619 (Version 1)
Quarter: 2019Q4

REPORT INFORMATION
  Report Type: Spontaneous
  Country: JP (occurrence: JP)
  Receive Date: 20191210
  Receipt Date: 20191210
  Transmission Date: 20200122
  Serious: Yes (Life-Threatening, Hospitalization)
  Sender: FDA-Public Use
  Company Number: JP-TEVA-2019-JP-1149608

PATIENT
  Age: 38 Year
  Sex: Female

DRUGS (1)
  1. METOCLOPRAMIDE. [Suspect]
     Active Substance: METOCLOPRAMIDE
     Indication: NAUSEA
     Route: 042

REACTIONS (3)
  - Cardiac failure acute [Recovered/Resolved]
  - Phaeochromocytoma crisis [Recovered/Resolved]
  - Cardiac arrest [Recovered/Resolved]
